FAERS Safety Report 6929222-2 (Version None)
Quarter: 2010Q3

REPORT INFORMATION
  Report Type: 
  Country: None (occurrence: None)
  Receive Date: 20100813
  Receipt Date: 20100528
  Transmission Date: 20110219
  Serious: Yes (Hospitalization)
  Sender: FDA-Public Use
  Company Number: AMI0021562

PATIENT
  Age: 56 Year
  Sex: Male

DRUGS (6)
  1. TIMOPTIC [Suspect]
     Indication: GLAUCOMA
     Dosage: BID - 046
     Dates: start: 20100405
  2. TAFLUPROST 0.0015% (MK-2452) [Suspect]
     Indication: GLAUCOMA
     Dosage: QD-046
     Dates: start: 20100415
  3. ATENOLOL [Concomitant]
  4. HYDROCODONE BITARTRATE [Concomitant]
  5. LISINOPRIL AND HYDROCHLOROTHIAZIDE [Concomitant]
  6. SIMVASTATIN [Concomitant]

REACTIONS (2)
  - FALL [None]
  - JOINT DISLOCATION [None]
